FAERS Safety Report 4840799-3 (Version None)
Quarter: 2005Q4

REPORT INFORMATION
  Report Type: 
  Country: None (occurrence: None)
  Receive Date: 20051130
  Receipt Date: 20041021
  Transmission Date: 20060501
  Serious: No
  Sender: FDA-Public Use
  Company Number: US-BRISTOL-MYERS SQUIBB COMPANY-12802930

PATIENT
  Age: 6 Decade
  Sex: Female

DRUGS (7)
  1. AVALIDE [Suspect]
  2. INDERAL [Concomitant]
  3. LORATADINE [Concomitant]
  4. ZANTAC [Concomitant]
  5. MULTI-VITAMINS [Concomitant]
  6. CALCIUM GLUCONATE [Concomitant]
  7. MAGNESIUM [Concomitant]

REACTIONS (1)
  - SWELLING FACE [None]
